FAERS Safety Report 18693619 (Version 1)
Quarter: 2021Q1

REPORT INFORMATION
  Report Type: Spontaneous
  Country: US (occurrence: US)
  Receive Date: 20210104
  Receipt Date: 20210104
  Transmission Date: 20210419
  Serious: Yes (Death, Life-Threatening, Hospitalization, Other)
  Sender: FDA-Public Use
  Company Number: US-GLENMARK PHARMACEUTICALS-2020GMK051315

PATIENT
  Age: 80 Year
  Sex: Male

DRUGS (1)
  1. FLUCONAZOLE. [Suspect]
     Active Substance: FLUCONAZOLE
     Indication: PRODUCT USED FOR UNKNOWN INDICATION
     Dosage: 1 DOSAGE FORM, QW (THE MEDIC ZOLEATION WAS STOPPED AFTER THREE DOSES)
     Route: 065

REACTIONS (7)
  - Rash [Unknown]
  - Acute hepatic failure [Fatal]
  - Acute kidney injury [Fatal]
  - Drug-induced liver injury [Fatal]
  - Coagulopathy [Fatal]
  - Hepatic cyst [Fatal]
  - Hepatic encephalopathy [Fatal]
